FAERS Safety Report 23384180 (Version 1)
Quarter: 2024Q1

REPORT INFORMATION
  Report Type: Spontaneous
  Country: GR (occurrence: GR)
  Receive Date: 20240109
  Receipt Date: 20240109
  Transmission Date: 20240410
  Serious: Yes (Other)
  Sender: FDA-Public Use
  Company Number: GR-002147023-NVSC2023GR264543

PATIENT
  Age: 40 Year
  Sex: Male

DRUGS (1)
  1. EXJADE [Suspect]
     Active Substance: DEFERASIROX
     Indication: Haemochromatosis
     Dosage: UNK, QD (5 TABLETS OF 360 MG AND 1  TABLET OF 180 MG PER DAY.)
     Route: 048
     Dates: start: 20231121

REACTIONS (6)
  - Pollakiuria [Recovered/Resolved]
  - Sperm concentration decreased [Recovered/Resolved]
  - Ejaculation disorder [Recovered/Resolved]
  - Abdominal distension [Recovered/Resolved]
  - Nausea [Recovered/Resolved]
  - Dizziness [Recovered/Resolved]
